FAERS Safety Report 6192026-5 (Version None)
Quarter: 2009Q2

REPORT INFORMATION
  Report Type: 
  Country: None (occurrence: None)
  Receive Date: 20090515
  Receipt Date: 20090510
  Transmission Date: 20091009
  Serious: Yes (Other)
  Sender: FDA-Public Use
  Company Number: US-BAYER-200911484BCC

PATIENT
  Sex: Male

DRUGS (2)
  1. ALEVE (CAPLET) [Suspect]
     Indication: INTENTIONAL OVERDOSE
     Route: 048
     Dates: start: 20090510
  2. ALCOHOL [Concomitant]

REACTIONS (1)
  - VOMITING [None]
